FAERS Safety Report 7746935-3 (Version None)
Quarter: 2011Q3

REPORT INFORMATION
  Report Type: 
  Country: None (occurrence: None)
  Receive Date: 20110913
  Receipt Date: 20110901
  Transmission Date: 20111222
  Serious: Yes (Other)
  Sender: FDA-Public Use
  Company Number: PHFR2011GB05153

PATIENT
  Sex: Male

DRUGS (2)
  1. CLOZAPINE [Suspect]
     Indication: SCHIZOPHRENIA
     Route: 048
     Dates: start: 20060810
  2. CLARITHROMYCIN [Concomitant]
     Dosage: UNK
     Route: 065

REACTIONS (3)
  - SCHIZOPHRENIA [None]
  - SKIN INFECTION [None]
  - WHITE BLOOD CELL COUNT INCREASED [None]
